FAERS Safety Report 4762176-6 (Version None)
Quarter: 2005Q3

REPORT INFORMATION
  Report Type: 
  Country: None (occurrence: None)
  Receive Date: 20050906
  Receipt Date: 20050906
  Transmission Date: 20060218
  Serious: No
  Sender: FDA-Public Use
  Company Number: None

PATIENT
  Age: 26 Year
  Sex: Female

DRUGS (1)
  1. PROPOFOL [Suspect]

REACTIONS (3)
  - CARDIAC ARREST [None]
  - DRUG EXPOSURE DURING PREGNANCY [None]
  - PROCEDURAL COMPLICATION [None]
